FAERS Safety Report 7148699-3 (Version None)
Quarter: 2010Q4

REPORT INFORMATION
  Report Type: 
  Country: None (occurrence: None)
  Receive Date: 20101209
  Receipt Date: 20101129
  Transmission Date: 20110411
  Serious: Yes (Disabling)
  Sender: FDA-Public Use
  Company Number: SE-GENENTECH-310559

PATIENT
  Sex: Female
  Weight: 91 kg

DRUGS (9)
  1. MABTHERA [Suspect]
     Indication: SYSTEMIC LUPUS ERYTHEMATOSUS
     Dosage: 1000 MG, UNK
     Route: 065
     Dates: start: 20100412, end: 20100412
  2. MABTHERA [Suspect]
     Indication: ARTHRITIS
     Route: 065
  3. METHOTREXATE [Concomitant]
     Indication: ARTHRITIS
     Dosage: 20 MG, 1/WEEK
  4. PREDNISOLONE [Concomitant]
     Indication: ARTHRITIS
     Dosage: 20 MG, QD
  5. ARCOXIA [Concomitant]
     Indication: ARTHRITIS
     Dosage: 90 MG, QD
  6. FOLACIN [Concomitant]
     Indication: PRODUCT USED FOR UNKNOWN INDICATION
     Dosage: 5 MG, BID
  7. OMEPRAZOLE [Concomitant]
     Indication: PRODUCT USED FOR UNKNOWN INDICATION
     Dosage: 20 MG, QD
  8. PLAQUENIL [Concomitant]
     Indication: PRODUCT USED FOR UNKNOWN INDICATION
     Dosage: 200 MG, QD
  9. PARACETAMOL [Concomitant]
     Indication: PRODUCT USED FOR UNKNOWN INDICATION
     Dosage: 3 G, QD

REACTIONS (2)
  - HYPERSENSITIVITY [None]
  - TOXIC SKIN ERUPTION [None]
